FAERS Safety Report 13259932 (Version 1)
Quarter: 2017Q1

REPORT INFORMATION
  Report Type: Spontaneous
  Country: US (occurrence: US)
  Receive Date: 20170222
  Receipt Date: 20170222
  Transmission Date: 20170428
  Serious: No
  Sender: FDA-Public Use
  Company Number: US-LUNDBECK-DKLU2022919

PATIENT
  Age: 85 Year
  Sex: Female

DRUGS (2)
  1. NORTHERA [Suspect]
     Active Substance: DROXIDOPA
     Indication: ORTHOSTATIC HYPOTENSION
     Dosage: 300MG AND 100MG BID
     Route: 048
     Dates: start: 201601
  2. NORTHERA [Suspect]
     Active Substance: DROXIDOPA
     Dosage: 100MG AND 300 MG BID
     Route: 048
     Dates: start: 201601

REACTIONS (1)
  - Dyspnoea [Unknown]

NARRATIVE: CASE EVENT DATE: 20161118
